FAERS Safety Report 4990050-9 (Version None)
Quarter: 2006Q2

REPORT INFORMATION
  Report Type: 
  Country: None (occurrence: None)
  Receive Date: 20060427
  Receipt Date: 20060421
  Transmission Date: 20061013
  Serious: Yes (Life-Threatening, Hospitalization)
  Sender: FDA-Public Use
  Company Number: A044-002-006050

PATIENT
  Age: 84 Year
  Sex: Female

DRUGS (6)
  1. ARICEPT [Suspect]
     Indication: DEMENTIA ALZHEIMER'S TYPE
     Dosage: 5 MG, 1 IN 1 D, ORAL
     Route: 048
     Dates: start: 20060314, end: 20060318
  2. HYDROCHLOROTHIAZIDE [Suspect]
     Indication: ESSENTIAL HYPERTENSION
     Dosage: 50 MG, ORAL  LONG TERM
     Route: 048
     Dates: end: 20060318
  3. COLEMIN (SIMVASTATIN) [Concomitant]
  4. BELMAZOL (OMEPRAZOLE) [Concomitant]
  5. MOTIVAN (PAROXETINE HYDROCHLORIDE) [Concomitant]
  6. CICLOFALINA (PIRACETAM) [Concomitant]

REACTIONS (2)
  - HYPERKALAEMIA [None]
  - SYNCOPE [None]
